FAERS Safety Report 9156530 (Version 1)
Quarter: 2013Q1

REPORT INFORMATION
  Report Type: Spontaneous
  Country: US (occurrence: None)
  Receive Date: 20130307
  Receipt Date: 20130307
  Transmission Date: 20140127
  Serious: Yes (Other)
  Sender: FDA-Public Use
  Company Number: None

PATIENT
  Age: 34 Year
  Sex: Male

DRUGS (1)
  1. MONTELUKAST SODIUM [Suspect]
     Indication: ALLERGY TO ANIMAL
     Route: 048

REACTIONS (3)
  - Product substitution issue [None]
  - Allergy to animal [None]
  - Condition aggravated [None]
